FAERS Safety Report 20637320 (Version 1)
Quarter: 2022Q1

REPORT INFORMATION
  Report Type: Spontaneous
  Country: US (occurrence: US)
  Receive Date: 20220325
  Receipt Date: 20220325
  Transmission Date: 20220423
  Serious: No
  Sender: FDA-Public Use
  Company Number: US-PFIZER INC-2021727633

PATIENT
  Age: 62 Year
  Sex: Female
  Weight: 63.492 kg

DRUGS (12)
  1. IBRANCE [Suspect]
     Active Substance: PALBOCICLIB
     Indication: Breast cancer female
     Dosage: 100 MG, CYCLIC (DAILY FOR 21 DAYS)
     Route: 048
     Dates: start: 20210510
  2. ASPIRIN [Concomitant]
     Active Substance: ASPIRIN
  3. METHOCARBAMOL [Concomitant]
     Active Substance: METHOCARBAMOL
  4. GABAPENTIN [Concomitant]
     Active Substance: GABAPENTIN
  5. TAMSULOSIN HYDROCHLORIDE [Concomitant]
     Active Substance: TAMSULOSIN HYDROCHLORIDE
  6. BETHANECHOL CHLORIDE [Concomitant]
     Active Substance: BETHANECHOL CHLORIDE
  7. COLACE [Concomitant]
     Active Substance: DOCUSATE SODIUM
  8. DEXAMETHASONE [Concomitant]
     Active Substance: DEXAMETHASONE
  9. TAMSULOSIN HYDROCHLORIDE [Concomitant]
     Active Substance: TAMSULOSIN HYDROCHLORIDE
  10. LUNESTA [Concomitant]
     Active Substance: ESZOPICLONE
  11. AMOXICILLIN [Concomitant]
     Active Substance: AMOXICILLIN
  12. ONDANSETRON [Concomitant]
     Active Substance: ONDANSETRON

REACTIONS (6)
  - Neuralgia [Unknown]
  - Condition aggravated [Unknown]
  - Alopecia [Unknown]
  - Pain [Unknown]
  - Constipation [Unknown]
  - Fatigue [Unknown]
